FAERS Safety Report 7721673-1 (Version None)
Quarter: 2011Q3

REPORT INFORMATION
  Report Type: 
  Country: None (occurrence: None)
  Receive Date: 20110831
  Receipt Date: 20110826
  Transmission Date: 20111222
  Serious: Yes (Death, Hospitalization)
  Sender: FDA-Public Use
  Company Number: US-GLAXOSMITHKLINE-A0942522A

PATIENT
  Age: 63 Year
  Sex: Female

DRUGS (13)
  1. FLEXERIL [Concomitant]
  2. NEXIUM [Concomitant]
  3. PROZAC [Concomitant]
  4. HYDROCODONE BITARTRATE [Concomitant]
  5. CODEINE [Concomitant]
  6. PROMETHAZINE [Concomitant]
  7. ESTRADIOL [Concomitant]
  8. MARINOL [Concomitant]
  9. PROAIR HFA [Concomitant]
  10. ZOFRAN [Concomitant]
  11. XOPENEX [Concomitant]
  12. HYCAMTIN [Suspect]
     Indication: SMALL CELL LUNG CANCER STAGE UNSPECIFIED
     Dosage: 220MCG PER DAY
     Route: 048
     Dates: start: 20101001
  13. ASMANEX TWISTHALER [Concomitant]

REACTIONS (1)
  - DEATH [None]
